FAERS Safety Report 21445629 (Version 1)
Quarter: 2022Q4

REPORT INFORMATION
  Report Type: Spontaneous
  Country: US (occurrence: US)
  Receive Date: 20221012
  Receipt Date: 20221012
  Transmission Date: 20230112
  Serious: Yes (Hospitalization)
  Sender: FDA-Public Use
  Company Number: US-BAYER-2022A141373

PATIENT
  Age: 80 Year
  Sex: Female

DRUGS (3)
  1. KERENDIA [Suspect]
     Active Substance: FINERENONE
     Dosage: UNK
     Dates: start: 202209, end: 202209
  2. METFORMIN [Concomitant]
     Active Substance: METFORMIN HYDROCHLORIDE
  3. ARB [ACETYLCYSTEINE] [Concomitant]

REACTIONS (2)
  - Hyperkalaemia [None]
  - Hospitalisation [None]

NARRATIVE: CASE EVENT DATE: 20221001
